FAERS Safety Report 9749708 (Version 1)
Quarter: 2013Q4

REPORT INFORMATION
  Report Type: Spontaneous
  Country: GB (occurrence: GB)
  Receive Date: 20131212
  Receipt Date: 20131212
  Transmission Date: 20140711
  Serious: Yes (Other)
  Sender: FDA-Public Use
  Company Number: GB-AMGEN-GBRSP2013086013

PATIENT
  Sex: Male

DRUGS (1)
  1. ARANESP [Suspect]
     Indication: ANAEMIA
     Dosage: 40 MUG, QWK
     Route: 042
     Dates: start: 201308

REACTIONS (3)
  - Aplasia pure red cell [Unknown]
  - Haemoglobin abnormal [Unknown]
  - Malaise [Unknown]
